FAERS Safety Report 25439207 (Version 1)
Quarter: 2025Q2

REPORT INFORMATION
  Report Type: Spontaneous
  Country: US (occurrence: None)
  Receive Date: 20250614
  Receipt Date: 20250614
  Transmission Date: 20250716
  Serious: Yes (Other)
  Sender: FDA-CTU
  Company Number: None

PATIENT
  Age: 49 Year
  Sex: Female
  Weight: 54 kg

DRUGS (3)
  1. EMGALITY [Suspect]
     Active Substance: GALCANEZUMAB-GNLM
     Indication: Migraine
     Route: 058
     Dates: start: 20250315, end: 20250315
  2. CYCLOBENZAPRINE [Concomitant]
     Active Substance: CYCLOBENZAPRINE
  3. FAMOTIDINE [Concomitant]
     Active Substance: FAMOTIDINE

REACTIONS (11)
  - Product communication issue [None]
  - Peripheral swelling [None]
  - Constipation [None]
  - Alopecia [None]
  - Tendonitis [None]
  - Joint swelling [None]
  - Peripheral swelling [None]
  - Joint swelling [None]
  - Pain [None]
  - Inflammation [None]
  - Hypersensitivity [None]

NARRATIVE: CASE EVENT DATE: 20250401
